FAERS Safety Report 13257385 (Version 2)
Quarter: 2017Q1

REPORT INFORMATION
  Report Type: Spontaneous
  Country: US (occurrence: US)
  Receive Date: 20170221
  Receipt Date: 20170221
  Transmission Date: 20170428
  Serious: Yes (Other)
  Sender: FDA-Public Use
  Company Number: US-GE HEALTHCARE LIFE SCIENCES-OMPQ-PR-1702S-0327

PATIENT
  Age: 72 Year
  Sex: Male
  Weight: 103.8 kg

DRUGS (17)
  1. KLOR-CON [Concomitant]
     Active Substance: POTASSIUM CHLORIDE
  2. OMNIPAQUE [Suspect]
     Active Substance: IOHEXOL
     Indication: FATIGUE
     Dosage: 40 ML, SINGLE
     Route: 013
     Dates: start: 20170201, end: 20170201
  3. FISH OIL [Concomitant]
     Active Substance: FISH OIL
  4. IMDUR [Concomitant]
     Active Substance: ISOSORBIDE MONONITRATE
  5. CARVEDILOL. [Concomitant]
     Active Substance: CARVEDILOL
  6. INDAPAMIDE. [Concomitant]
     Active Substance: INDAPAMIDE
  7. ALBUTEROL                          /00139501/ [Concomitant]
     Active Substance: ALBUTEROL
  8. NORVASC [Concomitant]
     Active Substance: AMLODIPINE BESYLATE
  9. SPIRONOLACTONE. [Concomitant]
     Active Substance: SPIRONOLACTONE
  10. ASA [Concomitant]
     Active Substance: ASPIRIN
  11. GLUCOTROL [Concomitant]
     Active Substance: GLIPIZIDE
  12. ZANTAC [Concomitant]
     Active Substance: RANITIDINE HYDROCHLORIDE
  13. PATANASE [Concomitant]
     Active Substance: OLOPATADINE HYDROCHLORIDE
  14. NEURONTIN [Concomitant]
     Active Substance: GABAPENTIN
  15. MULTIVITAMIN                       /00097801/ [Concomitant]
     Active Substance: VITAMINS
  16. ZETIA [Concomitant]
     Active Substance: EZETIMIBE
  17. PRALUENT [Concomitant]
     Active Substance: ALIROCUMAB

REACTIONS (2)
  - Pruritus generalised [None]
  - Blood pressure decreased [Recovered/Resolved]

NARRATIVE: CASE EVENT DATE: 20170202
